FAERS Safety Report 14266122 (Version 4)
Quarter: 2018Q1

REPORT INFORMATION
  Report Type: Spontaneous
  Country: IT (occurrence: IT)
  Receive Date: 20171209
  Receipt Date: 20180111
  Transmission Date: 20180508
  Serious: Yes (Hospitalization, Other)
  Sender: FDA-Public Use
  Company Number: IT-MYLANLABS-2017M1075665

PATIENT
  Age: 43 Year
  Sex: Male

DRUGS (23)
  1. RIBAVIRIN. [Interacting]
     Active Substance: RIBAVIRIN
     Dosage: 1200 MG, UNK
     Route: 048
     Dates: start: 20150603, end: 20151111
  2. TRUVADA [Concomitant]
     Active Substance: EMTRICITABINE\TENOFOVIR DISOPROXIL FUMARATE
     Indication: HIV INFECTION
     Route: 048
  3. RITONAVIR. [Interacting]
     Active Substance: RITONAVIR
     Indication: CHRONIC HEPATITIS C
  4. TALOFEN [Concomitant]
     Active Substance: PROMAZINE HYDROCHLORIDE
     Indication: PRODUCT USED FOR UNKNOWN INDICATION
     Dosage: 1 DF, UNK
     Route: 048
  5. LAMIVUDINE. [Interacting]
     Active Substance: LAMIVUDINE
     Indication: CHRONIC HEPATITIS C
  6. ABACAVIR. [Interacting]
     Active Substance: ABACAVIR
     Indication: CHRONIC HEPATITIS C
  7. ATAZANAVIR SULFATE. [Interacting]
     Active Substance: ATAZANAVIR SULFATE
     Indication: CHRONIC HEPATITIS C
  8. NEORECORMON [Concomitant]
     Active Substance: ERYTHROPOIETIN
     Indication: ANAEMIA
  9. RIBAVIRIN. [Interacting]
     Active Substance: RIBAVIRIN
     Indication: HIV INFECTION
     Dosage: 1000 MG, UNK
  10. RIBAVIRIN. [Interacting]
     Active Substance: RIBAVIRIN
     Indication: CHRONIC HEPATITIS C
     Dosage: 600 MG, UNK
  11. GAVISCON ADVANCE [Concomitant]
     Active Substance: POTASSIUM BICARBONATE\SODIUM ALGINATE
     Indication: DYSPEPSIA
     Route: 048
  12. EMTRICITABINE/TENOFOVIR DISOPROXIL FUMARATE [Suspect]
     Active Substance: EMTRICITABINE\TENOFOVIR DISOPROXIL FUMARATE
     Indication: HIV INFECTION
  13. ATAZANAVIR SULFATE. [Interacting]
     Active Substance: ATAZANAVIR SULFATE
     Indication: HIV INFECTION
     Dosage: 300 MG, UNK
     Route: 048
     Dates: start: 20091007, end: 20150722
  14. LAMIVUDINE. [Interacting]
     Active Substance: LAMIVUDINE
     Indication: HIV INFECTION
     Route: 048
  15. ABACAVIR. [Interacting]
     Active Substance: ABACAVIR
     Indication: HIV INFECTION
     Dosage: 1 DF, UNK
     Route: 048
  16. DACLATASVIR. [Interacting]
     Active Substance: DACLATASVIR
     Indication: CHRONIC HEPATITIS C
     Dosage: 60 MG, UNK
  17. DACLATASVIR. [Interacting]
     Active Substance: DACLATASVIR
     Indication: HIV INFECTION
     Dosage: 30 MG, UNK
     Dates: start: 20150603, end: 20150722
  18. RITONAVIR. [Interacting]
     Active Substance: RITONAVIR
     Indication: HIV INFECTION
     Dosage: 100 MG, UNK
     Route: 048
     Dates: start: 20091007, end: 20150722
  19. DOMPERIDONE [Concomitant]
     Active Substance: DOMPERIDONE
     Indication: NAUSEA
     Route: 048
  20. LACTULOSE. [Concomitant]
     Active Substance: LACTULOSE
     Indication: PRODUCT USED FOR UNKNOWN INDICATION
     Route: 051
  21. SOFOSBUVIR [Interacting]
     Active Substance: SOFOSBUVIR
     Indication: HIV INFECTION
     Dosage: 400 MG, UNK
     Route: 048
  22. SOFOSBUVIR [Interacting]
     Active Substance: SOFOSBUVIR
     Indication: CHRONIC HEPATITIS C
     Dosage: 60 UNK, UNK
  23. DIBASE [Concomitant]
     Active Substance: CHOLECALCIFEROL
     Indication: PRODUCT USED FOR UNKNOWN INDICATION
     Route: 048

REACTIONS (7)
  - Drug interaction [Recovered/Resolved]
  - Cholelithiasis [Recovered/Resolved]
  - Hyperbilirubinaemia [Recovered/Resolved]
  - Anaemia [Recovered/Resolved]
  - Nephrolithiasis [Recovered/Resolved]
  - Jaundice [Unknown]
  - Renal disorder [Recovered/Resolved]
